FAERS Safety Report 10376482 (Version 1)
Quarter: 2014Q3

REPORT INFORMATION
  Report Type: Spontaneous
  Country: IN (occurrence: None)
  Receive Date: 20140806
  Receipt Date: 20140806
  Transmission Date: 20150326
  Serious: Yes (Hospitalization)
  Sender: FDA-Public Use
  Company Number: UCM201407-000135

PATIENT
  Age: 19 Year
  Sex: Male

DRUGS (6)
  1. OLANZAPINE. [Suspect]
     Active Substance: OLANZAPINE
  2. ONDANSETRON [Concomitant]
     Active Substance: ONDANSETRON
  3. CLONAZEPAM. [Suspect]
     Active Substance: CLONAZEPAM
  4. DIVALPROEX SODIUM. [Suspect]
     Active Substance: DIVALPROEX SODIUM
     Route: 048
  5. LITHIUM [Suspect]
     Active Substance: LITHIUM CARBONATE
  6. RISPERIDONE. [Suspect]
     Active Substance: RISPERIDONE

REACTIONS (9)
  - Serotonin syndrome [None]
  - Unresponsive to stimuli [None]
  - Diarrhoea [None]
  - Transaminases increased [None]
  - Haemoglobin decreased [None]
  - Immobile [None]
  - Blood calcium decreased [None]
  - Neuroleptic malignant syndrome [None]
  - Blood iron decreased [None]
